FAERS Safety Report 17943797 (Version 4)
Quarter: 2023Q4

REPORT INFORMATION
  Report Type: Other
  Country: US (occurrence: None)
  Receive Date: 20200625
  Receipt Date: 20231010
  Transmission Date: 20240110
  Serious: Yes (Hospitalization, Other)
  Sender: FDA-Public Use
  Company Number: US-ROCHE-2627386

PATIENT
  Age: 70 Year
  Sex: Female

DRUGS (8)
  1. OCREVUS [Suspect]
     Active Substance: OCRELIZUMAB
     Indication: Secondary progressive multiple sclerosis
     Dosage: SUBSEQUENT DOSE: 27/FEB/2019, 27/AUG/2019, 03/MAR/2020, DOT: 3/22/23
     Route: 042
     Dates: start: 20180221
  2. SITAGLIPTIN [Concomitant]
     Active Substance: SITAGLIPTIN
  3. INSULIN GLARGINE [Concomitant]
     Active Substance: INSULIN GLARGINE
     Indication: Type 2 diabetes mellitus
  4. SIMVASTATIN [Concomitant]
     Active Substance: SIMVASTATIN
  5. CLOPIDOGREL [Concomitant]
     Active Substance: CLOPIDOGREL BISULFATE
  6. LISINOPRIL [Concomitant]
     Active Substance: LISINOPRIL
  7. LEVOTHYROXINE [Concomitant]
     Active Substance: LEVOTHYROXINE
  8. DALFAMPRIDINE [Concomitant]
     Active Substance: DALFAMPRIDINE
     Indication: Walking disability

REACTIONS (5)
  - Sepsis [Recovered/Resolved]
  - Escherichia infection [Recovered/Resolved]
  - White blood cell count increased [Recovered/Resolved]
  - Blood immunoglobulin G decreased [Unknown]
  - Infection [Unknown]

NARRATIVE: CASE EVENT DATE: 20191001
